FAERS Safety Report 26175736 (Version 1)
Quarter: 2025Q4

REPORT INFORMATION
  Report Type: Spontaneous
  Country: US (occurrence: US)
  Receive Date: 20251218
  Receipt Date: 20251218
  Transmission Date: 20260117
  Serious: No
  Sender: SANOFI AVENTIS
  Company Number: US-SA-2025SA375185

PATIENT
  Age: 41 Year
  Sex: Male

DRUGS (2)
  1. DUPIXENT [Suspect]
     Active Substance: DUPILUMAB
     Indication: Asthma
     Dosage: 600MG 1X
     Route: 058
     Dates: start: 20251202, end: 20251202
  2. NUCALA [Concomitant]
     Active Substance: MEPOLIZUMAB
     Dosage: UNK

REACTIONS (2)
  - Pain [Recovering/Resolving]
  - Arthralgia [Recovering/Resolving]

NARRATIVE: CASE EVENT DATE: 20251201
